FAERS Safety Report 6425208-5 (Version None)
Quarter: 2009Q4

REPORT INFORMATION
  Report Type: 
  Country: None (occurrence: None)
  Receive Date: 20091030
  Receipt Date: 20091030
  Transmission Date: 20100525
  Serious: Yes (Life-Threatening, Hospitalization, Disabling, Other)
  Sender: FDA-Public Use
  Company Number: None

PATIENT
  Age: 82 Year
  Sex: Male
  Weight: 83.4619 kg

DRUGS (2)
  1. NIASPAN [Suspect]
     Indication: BLOOD TRIGLYCERIDES ABNORMAL
     Dosage: NIASPAN 500 MG E 1 TABLET NIGHTLY
     Dates: start: 20090410, end: 20090414
  2. SIMVASTATIN [Suspect]
     Indication: HIGH DENSITY LIPOPROTEIN
     Dosage: SIMVASTATIN 40MG 1 TABLET NIGHTLY
     Dates: start: 20090410, end: 20090414

REACTIONS (6)
  - GAIT DISTURBANCE [None]
  - IMPAIRED DRIVING ABILITY [None]
  - LOSS OF CONTROL OF LEGS [None]
  - MUSCULAR WEAKNESS [None]
  - VISION BLURRED [None]
  - VISUAL ACUITY REDUCED [None]
